FAERS Safety Report 9247603 (Version 1)
Quarter: 2013Q1

REPORT INFORMATION
  Report Type: Spontaneous
  Country: US (occurrence: None)
  Receive Date: 20121130
  Receipt Date: 20121130
  Transmission Date: 20140127
  Serious: No
  Sender: FDA-Public Use
  Company Number: 337638

PATIENT
  Age: 53 Year
  Sex: Female

DRUGS (1)
  1. NOVOLOG MIX 70/30 [Suspect]
     Indication: TYPE 1 DIABETES MELLITUS
     Dosage: , SUBCUTANEOUS
     Route: 058
     Dates: start: 20111012

REACTIONS (1)
  - Blister [None]
